FAERS Safety Report 13229786 (Version 1)
Quarter: 2017Q1

REPORT INFORMATION
  Report Type: Spontaneous
  Country: US (occurrence: US)
  Receive Date: 20170213
  Receipt Date: 20170213
  Transmission Date: 20170428
  Serious: No
  Sender: FDA-Public Use
  Company Number: None

PATIENT
  Age: 42 Year
  Sex: Female

DRUGS (3)
  1. REBIF [Suspect]
     Active Substance: INTERFERON BETA-1A
     Indication: THYROIDITIS
     Route: 058
     Dates: start: 20160422, end: 20170115
  2. REBIF [Suspect]
     Active Substance: INTERFERON BETA-1A
     Indication: MULTIPLE SCLEROSIS
     Route: 058
     Dates: start: 20160422, end: 20170115
  3. REBIF [Suspect]
     Active Substance: INTERFERON BETA-1A
     Indication: MAJOR DEPRESSION
     Route: 058
     Dates: start: 20160422, end: 20170115

REACTIONS (5)
  - Injection site reaction [None]
  - Multiple sclerosis relapse [None]
  - Feeling abnormal [None]
  - Confusional state [None]
  - Asthenia [None]

NARRATIVE: CASE EVENT DATE: 20170115
